FAERS Safety Report 13599026 (Version 3)
Quarter: 2017Q2

REPORT INFORMATION
  Report Type: Spontaneous
  Country: JP (occurrence: JP)
  Receive Date: 20170531
  Receipt Date: 20170614
  Transmission Date: 20170830
  Serious: Yes (Other)
  Sender: FDA-Public Use
  Company Number: JP-JNJFOC-20170527995

PATIENT
  Age: 85 Year
  Sex: Male

DRUGS (4)
  1. XARELTO [Suspect]
     Active Substance: RIVAROXABAN
     Indication: ATRIAL FIBRILLATION
     Route: 048
     Dates: start: 201606
  2. XARELTO [Suspect]
     Active Substance: RIVAROXABAN
     Indication: PALPITATIONS
     Route: 048
     Dates: start: 201606
  3. TAMBOCOR [Concomitant]
     Active Substance: FLECAINIDE ACETATE
     Indication: ATRIAL FIBRILLATION
     Route: 065
     Dates: start: 201606
  4. TAMBOCOR [Concomitant]
     Active Substance: FLECAINIDE ACETATE
     Indication: PALPITATIONS
     Route: 065
     Dates: start: 201606

REACTIONS (2)
  - Bradycardia [Unknown]
  - Dysphoria [Unknown]

NARRATIVE: CASE EVENT DATE: 201610
